FAERS Safety Report 14747971 (Version 1)
Quarter: 2018Q2

REPORT INFORMATION
  Report Type: Spontaneous
  Country: US (occurrence: US)
  Receive Date: 20180411
  Receipt Date: 20180411
  Transmission Date: 20180711
  Serious: Yes (Other)
  Sender: FDA-Public Use
  Company Number: US-MYLANLABS-2018M1019922

PATIENT

DRUGS (1)
  1. METHYLPHENIDATE. [Suspect]
     Active Substance: METHYLPHENIDATE
     Indication: ATTENTION DEFICIT/HYPERACTIVITY DISORDER
     Route: 048

REACTIONS (7)
  - Drug ineffective [Unknown]
  - Somnolence [Unknown]
  - Palpitations [Unknown]
  - Product shape issue [Unknown]
  - Headache [Unknown]
  - Mental impairment [Unknown]
  - Dizziness [Unknown]
